FAERS Safety Report 4524983-4 (Version None)
Quarter: 2004Q4

REPORT INFORMATION
  Report Type: 
  Country: None (occurrence: None)
  Receive Date: 20041213
  Receipt Date: 20041201
  Transmission Date: 20050328
  Serious: Yes (Hospitalization)
  Sender: FDA-Public Use
  Company Number: US-AMGEN-US101286

PATIENT
  Sex: Male
  Weight: 181.6 kg

DRUGS (7)
  1. EPOGEN [Suspect]
     Indication: DIALYSIS
     Dates: start: 19970101
  2. INSULIN [Concomitant]
  3. IRON [Concomitant]
     Route: 042
     Dates: start: 20040301
  4. CELEBREX [Concomitant]
  5. SYNTHROID [Concomitant]
  6. LANOXIN [Concomitant]
  7. PROTONIX [Concomitant]

REACTIONS (3)
  - ASTHENIA [None]
  - FATIGUE [None]
  - THERAPEUTIC RESPONSE DECREASED [None]
